FAERS Safety Report 15861704 (Version 1)
Quarter: 2019Q1

REPORT INFORMATION
  Report Type: Spontaneous
  Country: MY (occurrence: MY)
  Receive Date: 20190124
  Receipt Date: 20190124
  Transmission Date: 20190417
  Serious: Yes (Other)
  Sender: FDA-Public Use
  Company Number: MY-TORRENT-00000187

PATIENT
  Age: 32 Year
  Sex: Female

DRUGS (1)
  1. METFORMIN [Suspect]
     Active Substance: METFORMIN HYDROCHLORIDE
     Indication: GESTATIONAL DIABETES
     Dosage: UNKNOWN

REACTIONS (2)
  - Weight decreased [Unknown]
  - Diabetic ketoacidosis [Recovered/Resolved]
